FAERS Safety Report 5011814-1 (Version None)
Quarter: 2006Q2

REPORT INFORMATION
  Report Type: 
  Country: None (occurrence: None)
  Receive Date: 20060526
  Receipt Date: 20060522
  Transmission Date: 20061013
  Serious: Yes (Other)
  Sender: FDA-Public Use
  Company Number: US-AVENTIS-200614575US

PATIENT
  Age: 32 Year
  Sex: Male

DRUGS (4)
  1. ALLEGRA [Suspect]
     Indication: HYPERSENSITIVITY
     Route: 048
     Dates: start: 20060104, end: 20060301
  2. NASONEX [Suspect]
     Indication: RHINITIS ALLERGIC
     Route: 045
     Dates: start: 20060104, end: 20060301
  3. SINGULAIR [Suspect]
     Indication: HYPERSENSITIVITY
     Dosage: DOSE: 10 MG/DAY
     Route: 048
     Dates: start: 20060104, end: 20060301
  4. ELIDEL [Suspect]
     Indication: ECZEMA
     Dosage: DOSE: UNK
     Route: 061
     Dates: start: 20060104, end: 20060301

REACTIONS (3)
  - CATARACT [None]
  - NIGHT BLINDNESS [None]
  - VISION BLURRED [None]
